FAERS Safety Report 16988425 (Version 1)
Quarter: 2019Q4

REPORT INFORMATION
  Report Type: Spontaneous
  Country: US (occurrence: US)
  Receive Date: 20190919
  Receipt Date: 20190919
  Transmission Date: 20200122
  Serious: Yes (Congenital Anomaly)
  Sender: FDA-Public Use
  Company Number: None

PATIENT
  Age: 18 Year
  Sex: Female
  Weight: 122.3 kg

DRUGS (3)
  1. ANAKINRA [Suspect]
     Active Substance: ANAKINRA
     Indication: STILL^S DISEASE
     Route: 058
     Dates: start: 20190614, end: 20190906
  2. ASPIRIN. [Concomitant]
     Active Substance: ASPIRIN
  3. PRENISONE [Concomitant]
     Active Substance: PREDNISONE

REACTIONS (4)
  - Maternal drugs affecting foetus [None]
  - Foetal growth restriction [None]
  - Oligohydramnios [None]
  - Maternal exposure during pregnancy [None]

NARRATIVE: CASE EVENT DATE: 20190614
